FAERS Safety Report 6577135-0 (Version None)
Quarter: 2010Q1

REPORT INFORMATION
  Report Type: 
  Country: None (occurrence: None)
  Receive Date: 20100210
  Receipt Date: 20100202
  Transmission Date: 20100710
  Serious: Yes (Other)
  Sender: FDA-Public Use
  Company Number: US-ABBOTT-10P-163-0624279-00

PATIENT
  Sex: Female

DRUGS (1)
  1. BIAXIN [Suspect]
     Indication: PHARYNGITIS STREPTOCOCCAL
     Dates: start: 20100119

REACTIONS (5)
  - ABASIA [None]
  - DIZZINESS [None]
  - PHARYNGITIS STREPTOCOCCAL [None]
  - TREMOR [None]
  - VISUAL IMPAIRMENT [None]
